FAERS Safety Report 8055847-X (Version None)
Quarter: 2012Q1

REPORT INFORMATION
  Report Type: 
  Country: None (occurrence: None)
  Receive Date: 20120119
  Receipt Date: 20120119
  Transmission Date: 20120608
  Serious: Yes (Other)
  Sender: FDA-Public Use
  Company Number: None

PATIENT
  Sex: Male
  Weight: 102.05 kg

DRUGS (2)
  1. PAXIL [Concomitant]
     Indication: MAJOR DEPRESSION
     Dosage: 40 MG
     Route: 048
  2. HUMIRA [Suspect]
     Indication: CROHN'S DISEASE
     Dosage: 40 MG
     Route: 058
     Dates: start: 20111021, end: 20111118

REACTIONS (2)
  - CHEST DISCOMFORT [None]
  - DRUG INTERACTION [None]
